FAERS Safety Report 15597271 (Version 3)
Quarter: 2023Q4

REPORT INFORMATION
  Report Type: Spontaneous
  Country: US (occurrence: US)
  Receive Date: 20181108
  Receipt Date: 20231004
  Transmission Date: 20240110
  Serious: Yes (Other)
  Sender: FDA-Public Use
  Company Number: PHEH2018US046837

PATIENT
  Age: 61 Year
  Sex: Female

DRUGS (7)
  1. RITALIN [Suspect]
     Active Substance: METHYLPHENIDATE HYDROCHLORIDE
     Indication: Product used for unknown indication
     Route: 065
  2. OFEV [Suspect]
     Active Substance: NINTEDANIB
     Indication: Idiopathic pulmonary fibrosis
     Dosage: 150 MG, BID
     Route: 048
     Dates: start: 20180516
  3. OFEV [Suspect]
     Active Substance: NINTEDANIB
     Dosage: 100 MG, BID
     Route: 048
     Dates: start: 20180516
  4. OFEV [Suspect]
     Active Substance: NINTEDANIB
     Dosage: 150 MG, UNK
     Route: 048
     Dates: start: 20180516
  5. OFEV [Suspect]
     Active Substance: NINTEDANIB
     Dosage: 100 MG, UNK
     Route: 048
     Dates: start: 20180516
  6. APIXABAN [Concomitant]
     Active Substance: APIXABAN
     Indication: Product used for unknown indication
     Dosage: UNK
     Route: 065
  7. AMLODIPINE [Concomitant]
     Active Substance: AMLODIPINE BESYLATE
     Indication: Product used for unknown indication
     Dosage: UNK
     Route: 065

REACTIONS (31)
  - Meniere^s disease [Unknown]
  - Peripheral swelling [Recovered/Resolved]
  - Joint swelling [Recovered/Resolved]
  - Pain in extremity [Unknown]
  - Feeling abnormal [Recovered/Resolved]
  - Somnolence [Unknown]
  - Chest discomfort [Unknown]
  - Fluid retention [Unknown]
  - Fatigue [Unknown]
  - Irritability [Unknown]
  - Feeling abnormal [Unknown]
  - Gait disturbance [Unknown]
  - Diarrhoea [Unknown]
  - Weight increased [Unknown]
  - Dyspnoea exertional [Unknown]
  - Gastrooesophageal reflux disease [Unknown]
  - Dysphonia [Unknown]
  - Abdominal distension [Unknown]
  - Burning sensation [Unknown]
  - Dyspepsia [Unknown]
  - Cough [Unknown]
  - Nausea [Unknown]
  - Abdominal pain [Unknown]
  - Headache [Unknown]
  - Constipation [Unknown]
  - Dyspepsia [Unknown]
  - Haemorrhoids [Unknown]
  - Weight increased [Unknown]
  - Gastrointestinal disorder [Unknown]
  - Eructation [Unknown]
  - Dizziness [Unknown]
